FAERS Safety Report 9082925 (Version 3)
Quarter: 2014Q2

REPORT INFORMATION
  Report Type: Report from Study
  Country: MX (occurrence: MX)
  Receive Date: 20130130
  Receipt Date: 20140508
  Transmission Date: 20141212
  Serious: Yes (Other)
  Sender: FDA-Public Use
  Company Number: PHHY2013MX008153

PATIENT
  Age: 53 Year
  Sex: Female

DRUGS (6)
  1. RASILEZ [Suspect]
     Indication: HYPERTENSION
     Dosage: 0.5 TABLET (150 MG) DAILY
     Route: 048
     Dates: start: 20110814
  2. RASILEZ [Suspect]
     Dosage: 1 TABLET (150 MG), UNK
  3. RASILEZ [Suspect]
     Dosage: 0.25 TABLET (150 MG) DAILY
     Route: 048
  4. DIABION                            /01763801/ [Concomitant]
     Indication: VITAMIN SUPPLEMENTATION
     Dosage: UNK UKN, UNK
  5. LYRICA [Concomitant]
     Dosage: 1 DF, QW2
     Route: 048
  6. OMEPRAZOLE [Concomitant]
     Indication: HYPERCHLORHYDRIA
     Dosage: 1 DF, DAILY
     Dates: start: 201210

REACTIONS (12)
  - Diabetes mellitus [Not Recovered/Not Resolved]
  - Diabetes mellitus inadequate control [Unknown]
  - Ligament sprain [Not Recovered/Not Resolved]
  - Constipation [Unknown]
  - Stress [Unknown]
  - Feeling abnormal [Not Recovered/Not Resolved]
  - Blood pressure increased [Unknown]
  - Headache [Not Recovered/Not Resolved]
  - Drug hypersensitivity [Not Recovered/Not Resolved]
  - Dizziness [Not Recovered/Not Resolved]
  - Cough [Unknown]
  - Wrong technique in drug usage process [Not Recovered/Not Resolved]
